FAERS Safety Report 9423726 (Version 1)
Quarter: 2013Q3

REPORT INFORMATION
  Report Type: Report from Study
  Country: AU (occurrence: AU)
  Receive Date: 20130728
  Receipt Date: 20130728
  Transmission Date: 20140515
  Serious: Yes (Hospitalization)
  Sender: FDA-Public Use
  Company Number: PHHY2013AU066105

PATIENT
  Age: 66 Year
  Sex: Female

DRUGS (14)
  1. CLOZARIL [Suspect]
     Dosage: 300 MG
     Dates: start: 20090608
  2. SODIUM VALPROATE [Concomitant]
     Dosage: 2200 MG, (1000 MG MANE: 1000 MG NOCTE)
  3. ARIPIPRAZOLE [Concomitant]
     Dosage: 45 MG, DAILY
  4. NIFEDIPINE [Concomitant]
     Dosage: 90 MG, MORNING
  5. METOPROLOL [Concomitant]
     Dosage: 25 MG, BID
  6. LORAZEPAM [Concomitant]
     Dosage: 0.5 MG, BID
  7. HEPARIN [Concomitant]
     Dosage: 5000 U, BID
     Route: 058
  8. THIAMINE [Concomitant]
     Dosage: 300 MG, UNK
     Route: 042
  9. AMOXICILLIN [Concomitant]
     Dosage: 1000 MG, TID
     Route: 048
  10. NICOTINE [Concomitant]
     Dosage: 21 MG, PATCH PER HR
  11. COLOXYL [Concomitant]
     Dosage: 2 DF, BID
  12. SENNA [Concomitant]
     Dosage: 2 DF, BID
  13. MOVICOL [Concomitant]
     Dosage: 2 DF, BID
  14. GTN [Concomitant]
     Dosage: PATCH 5

REACTIONS (11)
  - Kidney infection [Recovered/Resolved]
  - Pneumonia pneumococcal [Recovering/Resolving]
  - Lower respiratory tract infection [Recovering/Resolving]
  - Pneumonia [Unknown]
  - General physical health deterioration [Unknown]
  - Influenza like illness [Unknown]
  - Pyrexia [Unknown]
  - Disorientation [Unknown]
  - Fluid overload [Unknown]
  - Confusional state [Unknown]
  - Fatigue [Unknown]
